FAERS Safety Report 12759526 (Version 3)
Quarter: 2017Q2

REPORT INFORMATION
  Report Type: Report from Study
  Country: US (occurrence: US)
  Receive Date: 20160919
  Receipt Date: 20170628
  Transmission Date: 20170830
  Serious: Yes (Hospitalization)
  Sender: FDA-Public Use
  Company Number: US-PFIZER INC-2016423295

PATIENT
  Age: 62 Year
  Sex: Female
  Weight: 116 kg

DRUGS (19)
  1. PREDNISONE. [Concomitant]
     Active Substance: PREDNISONE
     Indication: RHEUMATOID ARTHRITIS
     Dosage: 5 MG, DAILY
     Route: 048
     Dates: start: 201602
  2. XANAX [Concomitant]
     Active Substance: ALPRAZOLAM
     Indication: DEPRESSION
  3. HYDROCODONE [Concomitant]
     Active Substance: HYDROCODONE
     Indication: RHEUMATOID ARTHRITIS
     Dosage: 10 MG, AS NEEDED
     Route: 048
     Dates: start: 20160601
  4. TORSEMIDE. [Concomitant]
     Active Substance: TORSEMIDE
     Indication: CARDIAC FAILURE CONGESTIVE
     Dosage: 40 MG, DAILY
     Route: 048
     Dates: start: 20080923
  5. CRESTOR [Concomitant]
     Active Substance: ROSUVASTATIN CALCIUM
     Indication: HYPERCHOLESTEROLAEMIA
     Dosage: 10 MG, DAILY
     Route: 048
     Dates: start: 20080923
  6. METHOTREXATE. [Concomitant]
     Active Substance: METHOTREXATE
     Indication: RHEUMATOID ARTHRITIS
     Dosage: 15 MG, WEEKLY
     Route: 058
     Dates: start: 20150423
  7. XELJANZ [Suspect]
     Active Substance: TOFACITINIB CITRATE
     Indication: RHEUMATOID ARTHRITIS
     Dosage: 5 MG, 2X/DAY
     Route: 048
     Dates: start: 20160824, end: 20160901
  8. ISONIAZIDE [Suspect]
     Active Substance: ISONIAZID
     Indication: LATENT TUBERCULOSIS
     Dosage: 300 MG, DAILY
     Route: 048
     Dates: start: 20160809, end: 20160901
  9. POTASSIUM [Concomitant]
     Active Substance: POTASSIUM
     Indication: SUPPLEMENTATION THERAPY
     Dosage: 40 MG, DAILY
     Route: 048
     Dates: start: 20080923
  10. VITAMIN D /00107901/ [Concomitant]
     Active Substance: ERGOCALCIFEROL
     Indication: SUPPLEMENTATION THERAPY
     Dosage: 1000 MG, DAILY
     Route: 048
     Dates: start: 20080923
  11. XANAX [Concomitant]
     Active Substance: ALPRAZOLAM
     Indication: ANXIETY
     Dosage: 0.25 MG, AS NEEDED
     Route: 048
     Dates: start: 20080923
  12. LANTUS [Concomitant]
     Active Substance: INSULIN GLARGINE
     Indication: DIABETES MELLITUS
     Dosage: 42 UNITS, DAILY
     Route: 058
     Dates: start: 20080923
  13. ZOLOFT [Concomitant]
     Active Substance: SERTRALINE HYDROCHLORIDE
     Indication: DEPRESSION
     Dosage: 150 MG, DAILY
     Route: 048
     Dates: start: 20080923
  14. XIGDUO XR [Concomitant]
     Active Substance: DAPAGLIFLOZIN PROPANEDIOL\METFORMIN HYDROCHLORIDE
     Indication: DIABETES MELLITUS
     Dosage: 1050 MG, DAILY
     Route: 048
     Dates: start: 20150423
  15. LOSARTAN. [Concomitant]
     Active Substance: LOSARTAN
     Indication: HYPERTENSION
     Dosage: 100 MG, DAILY
     Route: 048
     Dates: start: 20080923
  16. VICTOZA [Concomitant]
     Active Substance: LIRAGLUTIDE
     Indication: DIABETES MELLITUS
     Dosage: 1.8 MG, DAILY
     Route: 058
     Dates: start: 2013
  17. NEURONTIN [Concomitant]
     Active Substance: GABAPENTIN
     Indication: RHEUMATOID ARTHRITIS
     Dosage: 2 TABS, AT BEDTIME
     Route: 048
     Dates: start: 20080923
  18. FOLIC ACID. [Concomitant]
     Active Substance: FOLIC ACID
     Indication: SUPPLEMENTATION THERAPY
     Dosage: 1 MG, DAILY
     Route: 048
     Dates: start: 20080923
  19. VITAMIN B6 [Concomitant]
     Active Substance: PYRIDOXINE HYDROCHLORIDE
     Indication: SUPPLEMENTATION THERAPY
     Dosage: 50 MG, DAILY
     Route: 048
     Dates: start: 20160809

REACTIONS (1)
  - Pancreatitis acute [Recovered/Resolved]

NARRATIVE: CASE EVENT DATE: 20160824
